FAERS Safety Report 14072244 (Version 4)
Quarter: 2021Q4

REPORT INFORMATION
  Report Type: Spontaneous
  Country: US (occurrence: US)
  Receive Date: 20171010
  Receipt Date: 20211029
  Transmission Date: 20220303
  Serious: Yes (Disabling, Other)
  Sender: FDA-Public Use
  Company Number: US-SA-2017SA176564

PATIENT
  Age: 78 Year
  Sex: Male

DRUGS (2)
  1. DUPIXENT [Suspect]
     Active Substance: DUPILUMAB
     Indication: Dermatitis atopic
     Dosage: 300 MG, QOW
     Route: 058
     Dates: start: 20190723
  2. ELIQUIS [Concomitant]
     Active Substance: APIXABAN

REACTIONS (7)
  - Immobile [Unknown]
  - Nerve compression [Not Recovered/Not Resolved]
  - Musculoskeletal discomfort [Unknown]
  - Eye disorder [Unknown]
  - Lacrimation increased [Unknown]
  - Pruritus [Not Recovered/Not Resolved]
  - Dermatitis atopic [Unknown]

NARRATIVE: CASE EVENT DATE: 20200410
